FAERS Safety Report 5350830-7 (Version None)
Quarter: 2007Q2

REPORT INFORMATION
  Report Type: 
  Country: None (occurrence: None)
  Receive Date: 20070608
  Receipt Date: 20070601
  Transmission Date: 20071010
  Serious: Yes (Hospitalization)
  Sender: FDA-Public Use
  Company Number: US-AVENTIS-200714020US

PATIENT
  Age: 20 Year
  Sex: Female

DRUGS (4)
  1. LANTUS [Suspect]
     Dosage: DOSE: 32 U VIA CARTRIDGE
     Dates: start: 20050101
  2. LANTUS [Suspect]
     Dosage: DOSE: 32 U VIA VIAL AND SYRINGE
     Dates: start: 20070101
  3. OPTICLIK (INSULIN INJECTION PEN) [Suspect]
     Dates: start: 20050101, end: 20070429
  4. HUMALOG                            /01293501/ [Concomitant]
     Dosage: DOSE: SLIDING SCALE

REACTIONS (2)
  - DIABETIC KETOACIDOSIS [None]
  - HYPERGLYCAEMIA [None]
